FAERS Safety Report 23331632 (Version 1)
Quarter: 2023Q4

REPORT INFORMATION
  Report Type: Report from Study
  Country: US (occurrence: US)
  Receive Date: 20231222
  Receipt Date: 20231222
  Transmission Date: 20240109
  Serious: Yes (Hospitalization, Other)
  Sender: FDA-Public Use
  Company Number: US-HLS-202301818

PATIENT
  Age: 53 Year
  Sex: Female
  Weight: 104 kg

DRUGS (2)
  1. CLOZAPINE [Suspect]
     Active Substance: CLOZAPINE
     Indication: Schizophrenia
     Dosage: 100 MG QAM+ 200 MG AHS
     Route: 048
     Dates: start: 20161103, end: 20231204
  2. CLOZAPINE [Suspect]
     Active Substance: CLOZAPINE
     Indication: Schizophrenia
     Dosage: 50 MG BID
     Route: 048
     Dates: start: 20231204

REACTIONS (6)
  - Hallucination [Unknown]
  - Hypertension [Unknown]
  - Hypothyroidism [Unknown]
  - Confusional state [Unknown]
  - Paranoia [Unknown]
  - Seizure [Unknown]
